FAERS Safety Report 19487794 (Version 3)
Quarter: 2022Q2

REPORT INFORMATION
  Report Type: Spontaneous
  Country: JP (occurrence: JP)
  Receive Date: 20210702
  Receipt Date: 20220406
  Transmission Date: 20220720
  Serious: Yes (Hospitalization, Other)
  Sender: FDA-Public Use
  Company Number: JP-ALLERGAN-2124004US

PATIENT
  Sex: Male
  Weight: 41.1 kg

DRUGS (3)
  1. ESCITALOPRAM OXALATE [Interacting]
     Active Substance: ESCITALOPRAM OXALATE
     Indication: Depression
     Dosage: 20 MG, QD
     Route: 048
  2. MOCLOBEMIDE [Interacting]
     Active Substance: MOCLOBEMIDE
     Indication: Product used for unknown indication
     Dosage: OVERDOSE: 6000MG/DAY
     Route: 048
  3. QUETIAPINE [Concomitant]
     Active Substance: QUETIAPINE
     Indication: Product used for unknown indication
     Dosage: 400 MG, Q8HR
     Route: 048

REACTIONS (5)
  - Pneumonia aspiration [Recovering/Resolving]
  - Drug interaction [Unknown]
  - Rhabdomyolysis [Recovering/Resolving]
  - Serotonin syndrome [Recovering/Resolving]
  - Labelled drug-drug interaction medication error [Unknown]

NARRATIVE: CASE EVENT DATE: 20200831
